FAERS Safety Report 8242192-2 (Version None)
Quarter: 2012Q1

REPORT INFORMATION
  Report Type: 
  Country: None (occurrence: None)
  Receive Date: 20120329
  Receipt Date: 20120316
  Transmission Date: 20120608
  Serious: Yes (Other)
  Sender: FDA-Public Use
  Company Number: BR-AMGEN-BRASP2012011592

PATIENT
  Age: 77 Year
  Sex: Female

DRUGS (8)
  1. ENBREL [Suspect]
     Indication: RHEUMATOID ARTHRITIS
     Dosage: 50 MG, WEEKLY
     Route: 058
     Dates: start: 20120206
  2. CLOPIDOGREL [Concomitant]
     Indication: CARDIAC DISORDER
     Dosage: UNK
  3. OMEPRAZOLE [Concomitant]
     Indication: GASTRIC DISORDER
     Dosage: UNK
  4. ARADOIS H [Concomitant]
     Indication: BLOOD PRESSURE INCREASED
     Dosage: UNK
  5. ASPIRIN [Concomitant]
     Indication: CARDIAC DISORDER
     Dosage: UNK
  6. INSULIN [Suspect]
     Indication: DIABETES MELLITUS
     Dosage: UNK
  7. ROSUVASTATIN [Concomitant]
     Indication: CARDIAC DISORDER
     Dosage: UNK
  8. NORTRIPTYLINE HCL [Concomitant]
     Indication: SLEEP DISORDER
     Dosage: 25 MG, UNK

REACTIONS (9)
  - BURNING SENSATION [None]
  - SKIN MASS [None]
  - IMMUNE SYSTEM DISORDER [None]
  - MOVEMENT DISORDER [None]
  - BLISTER [None]
  - OPEN WOUND [None]
  - ERYTHEMA [None]
  - PRURITUS [None]
  - HERPES VIRUS INFECTION [None]
